FAERS Safety Report 17060394 (Version 1)
Quarter: 2019Q4

REPORT INFORMATION
  Report Type: Report from Study
  Country: US (occurrence: US)
  Receive Date: 20191121
  Receipt Date: 20191121
  Transmission Date: 20200122
  Serious: Yes (Other)
  Sender: FDA-Public Use
  Company Number: PHHY2019US092619

PATIENT
  Age: 52 Year
  Sex: Female

DRUGS (2)
  1. GILENYA [Suspect]
     Active Substance: FINGOLIMOD HYDROCHLORIDE
     Indication: MULTIPLE SCLEROSIS
     Dosage: UNK
     Route: 048
  2. MEMANTINE HYDROCHLORIDE. [Concomitant]
     Active Substance: MEMANTINE HYDROCHLORIDE
     Indication: NYSTAGMUS
     Dosage: UNK
     Route: 065
     Dates: start: 20190927, end: 20191007

REACTIONS (3)
  - Rectal haemorrhage [Unknown]
  - Balance disorder [Unknown]
  - Depression [Unknown]

NARRATIVE: CASE EVENT DATE: 20190707
